FAERS Safety Report 4340147-1 (Version None)
Quarter: 2004Q2

REPORT INFORMATION
  Report Type: 
  Country: None (occurrence: None)
  Receive Date: 20040416
  Receipt Date: 20040416
  Transmission Date: 20050107
  Serious: Yes (Disabling, Other)
  Sender: FDA-Public Use
  Company Number: None

PATIENT
  Age: 47 Year
  Sex: Female
  Weight: 53.0709 kg

DRUGS (5)
  1. PAXIL [Suspect]
     Indication: DEPRESSION
     Dosage: 1 TAB AT BEDTIME ORALLY
     Route: 048
     Dates: start: 20040119
  2. PAXIL [Suspect]
     Indication: DEPRESSION
     Dosage: 1 TAB AT BEDTIME ORALLY
     Route: 048
     Dates: start: 20040209
  3. PAXIL [Suspect]
     Indication: DEPRESSION
     Dosage: 1 TAB AT BEDTIME ORALLY
     Route: 048
     Dates: start: 20040409
  4. PAXIL [Suspect]
     Indication: DEPRESSION
     Dosage: 1 TAB AT BEDTIME ORALLY
     Route: 048
     Dates: start: 20040410
  5. PAXIL [Suspect]
     Indication: DEPRESSION
     Dosage: 1 TAB AT BEDTIME ORALLY
     Route: 048
     Dates: start: 20040412

REACTIONS (14)
  - ABNORMAL DREAMS [None]
  - ANGER [None]
  - CONFUSIONAL STATE [None]
  - DISTURBANCE IN ATTENTION [None]
  - DIZZINESS [None]
  - HOT FLUSH [None]
  - HYPERHIDROSIS [None]
  - INSOMNIA [None]
  - IRRITABILITY [None]
  - MOOD SWINGS [None]
  - PARAESTHESIA [None]
  - PSYCHIATRIC SYMPTOM [None]
  - SLEEP DISORDER [None]
  - VERTIGO [None]
